FAERS Safety Report 5449527-4 (Version None)
Quarter: 2007Q3

REPORT INFORMATION
  Report Type: 
  Country: None (occurrence: None)
  Receive Date: 20070907
  Receipt Date: 20070822
  Transmission Date: 20080115
  Serious: Yes (Hospitalization, Other)
  Sender: FDA-Public Use
  Company Number: ANTA0700174

PATIENT
  Age: 42 Year
  Sex: Male

DRUGS (1)
  1. FENOFIBRATE [Suspect]
     Indication: BLOOD TRIGLYCERIDES INCREASED
     Dosage: 130 MG, QD, ORAL
     Route: 048
     Dates: start: 20060901, end: 20070809

REACTIONS (2)
  - COMPLEX PARTIAL SEIZURES [None]
  - DRUG DOSE OMISSION [None]
